FAERS Safety Report 12329924 (Version 6)
Quarter: 2016Q2

REPORT INFORMATION
  Report Type: Report from Study
  Country: CA (occurrence: CA)
  Receive Date: 20160503
  Receipt Date: 20160606
  Transmission Date: 20160815
  Serious: Yes (Other)
  Sender: FDA-Public Use
  Company Number: CA-ROCHE-1750319

PATIENT
  Age: 49 Year
  Sex: Female

DRUGS (4)
  1. RITUXAN [Suspect]
     Active Substance: RITUXIMAB
     Indication: GRANULOMATOSIS WITH POLYANGIITIS
  2. PREDNISONE. [Concomitant]
     Active Substance: PREDNISONE
  3. DAPSONE. [Concomitant]
     Active Substance: DAPSONE
  4. RITUXAN [Suspect]
     Active Substance: RITUXIMAB
     Indication: VASCULITIS
     Dosage: UNKNOWN DOSE AND FREQUENCY
     Route: 042
     Dates: start: 201105

REACTIONS (7)
  - Cough [Not Recovered/Not Resolved]
  - Influenza [Unknown]
  - Malaise [Unknown]
  - Infusion related reaction [Recovered/Resolved]
  - Pulmonary cavitation [Unknown]
  - Granulomatosis with polyangiitis [Unknown]
  - Asthenia [Unknown]

NARRATIVE: CASE EVENT DATE: 2016
